FAERS Safety Report 7502439-4 (Version None)
Quarter: 2011Q2

REPORT INFORMATION
  Report Type: 
  Country: None (occurrence: None)
  Receive Date: 20110523
  Receipt Date: 20110523
  Transmission Date: 20111010
  Serious: Yes (Life-Threatening, Hospitalization)
  Sender: FDA-Public Use
  Company Number: None

PATIENT
  Sex: Female
  Weight: 70.3075 kg

DRUGS (1)
  1. DARVOCET [Suspect]
     Indication: PAIN

REACTIONS (2)
  - MYOCARDIAL INFARCTION [None]
  - HEART RATE IRREGULAR [None]
